FAERS Safety Report 21164955 (Version 2)
Quarter: 2022Q3

REPORT INFORMATION
  Report Type: Spontaneous
  Country: IT (occurrence: IT)
  Receive Date: 20220803
  Receipt Date: 20220817
  Transmission Date: 20221026
  Serious: Yes (Other)
  Sender: FDA-Public Use
  Company Number: IT-MINISAL02-876413

PATIENT
  Age: 83 Year
  Sex: Male

DRUGS (3)
  1. BISOPROLOL [Suspect]
     Active Substance: BISOPROLOL
     Indication: Product used for unknown indication
     Dosage: UNK (LA DURATA TP ? ATTRIBUITA D^UFFICIO.)
     Route: 065
     Dates: start: 20220101, end: 20220604
  2. IRBESARTAN [Suspect]
     Active Substance: IRBESARTAN
     Indication: Product used for unknown indication
     Dosage: UNK (LA DURATA TP ? ATTRIBUITA D^UFFICIO)
     Route: 065
     Dates: start: 20220101, end: 20220604
  3. CANRENONE [Suspect]
     Active Substance: CANRENONE
     Indication: Product used for unknown indication
     Dosage: UNK
     Route: 065

REACTIONS (1)
  - Syncope [Recovered/Resolved]

NARRATIVE: CASE EVENT DATE: 20220604
